FAERS Safety Report 4941109-3 (Version None)
Quarter: 2006Q1

REPORT INFORMATION
  Report Type: 
  Country: None (occurrence: None)
  Receive Date: 20060313
  Receipt Date: 20051122
  Transmission Date: 20060701
  Serious: Yes (Death)
  Sender: FDA-Public Use
  Company Number: US-GLAXOSMITHKLINE-A0583915A

PATIENT
  Age: 19 Year
  Sex: Female

DRUGS (2)
  1. PAXIL CR [Suspect]
     Indication: DEPRESSION
     Dosage: 25MG PER DAY
     Route: 048
     Dates: start: 20031105
  2. EFFEXOR XR [Concomitant]
     Dosage: 150MG PER DAY
     Route: 048
     Dates: end: 20031105

REACTIONS (2)
  - COMPLETED SUICIDE [None]
  - SUICIDAL IDEATION [None]
